FAERS Safety Report 19955312 (Version 1)
Quarter: 2021Q4

REPORT INFORMATION
  Report Type: Spontaneous
  Country: US (occurrence: US)
  Receive Date: 20211014
  Receipt Date: 20211014
  Transmission Date: 20220303
  Serious: No
  Sender: FDA-Public Use
  Company Number: None

PATIENT
  Age: 61 Year
  Sex: Female

DRUGS (2)
  1. HUMIRA [Suspect]
     Active Substance: ADALIMUMAB
     Indication: Ankylosing spondylitis
     Dosage: ?          OTHER FREQUENCY:EVERY 14 DAYS;
     Dates: start: 20200303
  2. Cymdalta 60mg [Concomitant]

REACTIONS (5)
  - Malaise [None]
  - Headache [None]
  - Cough [None]
  - Oropharyngeal pain [None]
  - Viral infection [None]

NARRATIVE: CASE EVENT DATE: 20210930
